FAERS Safety Report 10856333 (Version 2)
Quarter: 2015Q1

REPORT INFORMATION
  Report Type: Spontaneous
  Country: US (occurrence: US)
  Receive Date: 20150223
  Receipt Date: 20150226
  Transmission Date: 20150721
  Serious: Yes (Other)
  Sender: FDA-Public Use
  Company Number: US-CELGENEUS-163-21880-14073116

PATIENT
  Sex: Female

DRUGS (2)
  1. REVLIMID [Suspect]
     Active Substance: LENALIDOMIDE
     Route: 048
     Dates: start: 20140106
  2. REVLIMID [Suspect]
     Active Substance: LENALIDOMIDE
     Indication: MYELODYSPLASTIC SYNDROME
     Route: 048
     Dates: start: 201312

REACTIONS (6)
  - Hair texture abnormal [Not Recovered/Not Resolved]
  - Pain of skin [Unknown]
  - Diarrhoea [Unknown]
  - Madarosis [Not Recovered/Not Resolved]
  - Constipation [Unknown]
  - Rash [Unknown]
